FAERS Safety Report 8131234 (Version 10)
Quarter: 2013Q1

REPORT INFORMATION
  Report Type: Spontaneous
  Country: TH (occurrence: TH)
  Receive Date: 20110912
  Receipt Date: 20130114
  Transmission Date: 20140127
  Serious: Yes (Hospitalization, Other)
  Sender: FDA-Public Use
  Company Number: TH-ELI_LILLY_AND_COMPANY-TH201107003911

PATIENT
  Age: 57 Year
  Sex: Male

DRUGS (17)
  1. HUMULIN NPH [Suspect]
     Indication: TYPE 2 DIABETES MELLITUS
     Dosage: 30 IU, UNK
     Route: 065
  2. HUMULIN NPH [Suspect]
     Dosage: 46 IU, UNKNOWN
     Dates: start: 20110528, end: 20111012
  3. HUMULIN NPH [Suspect]
     Dosage: 14 IU, UNKNOWN
     Dates: start: 20120209, end: 20120308
  4. HUMULIN REGULAR [Suspect]
     Indication: TYPE 2 DIABETES MELLITUS
     Dosage: 12 IU, UNK
     Route: 065
  5. HUMULIN REGULAR [Suspect]
     Dosage: 16 IU, UNKNOWN
     Dates: start: 20110528, end: 20111012
  6. HUMULIN REGULAR [Suspect]
     Dosage: 18 IU, UNKNOWN
     Dates: start: 20120209, end: 20120308
  7. HUMULIN REGULAR [Suspect]
     Dosage: 22 IU, UNKNOWN
     Dates: start: 20120308
  8. SAXAGLIPTIN [Concomitant]
     Indication: TYPE 2 DIABETES MELLITUS
     Dosage: UNK
     Dates: start: 20110309, end: 20110825
  9. PLACEBO [Concomitant]
  10. ASPIRIN [Concomitant]
     Dosage: UNK
  11. HMG COA REDUCTASE INHIBITORS [Concomitant]
     Dosage: UNK
  12. BETA BLOCKING AGENTS [Concomitant]
     Dosage: UNK
  13. ALDOSTERONE ANTAGONISTS [Concomitant]
     Dosage: UNK
  14. NITROGLYCERIN [Concomitant]
     Dosage: UNK
  15. DIURETICS [Concomitant]
     Dosage: UNK
  16. PIOGLITAZONE HYDROCHLORIDE [Concomitant]
     Indication: TYPE 2 DIABETES MELLITUS
     Dosage: 15 MG, UNK
     Dates: start: 20111229
  17. INSULIN [Concomitant]
     Dosage: 24 IU, UNKNOWN
     Dates: start: 20111012, end: 20120209

REACTIONS (15)
  - Acute myocardial infarction [Recovered/Resolved]
  - Ischaemic cardiomyopathy [Recovered/Resolved]
  - Hypoglycaemia [Recovered/Resolved]
  - Hypoglycaemia [Unknown]
  - Angina unstable [Recovered/Resolved]
  - Congestive cardiomyopathy [Recovered/Resolved]
  - Presyncope [Recovered/Resolved]
  - Angina unstable [Recovered/Resolved]
  - Angina unstable [Recovered/Resolved]
  - Hyperglycaemia [Unknown]
  - Herpes zoster [Recovered/Resolved]
  - Angina unstable [Recovered/Resolved]
  - Dizziness [Unknown]
  - Chest discomfort [Unknown]
  - Hypoglycaemia [Unknown]
